FAERS Safety Report 16958894 (Version 1)
Quarter: 2019Q4

REPORT INFORMATION
  Report Type: Spontaneous
  Country: CA (occurrence: CA)
  Receive Date: 20191024
  Receipt Date: 20191024
  Transmission Date: 20200122
  Serious: Yes (Death, Hospitalization)
  Sender: FDA-Public Use
  Company Number: CA-ALLERGAN-1942335US

PATIENT
  Sex: Male

DRUGS (1)
  1. BOTOX [Suspect]
     Active Substance: ONABOTULINUMTOXINA
     Indication: MUSCLE SPASTICITY
     Dosage: 500 UNITS, UNK
     Route: 030

REACTIONS (5)
  - Subarachnoid haemorrhage [Fatal]
  - Fall [Fatal]
  - Malaise [Fatal]
  - Hypophagia [Fatal]
  - Overdose [Fatal]
